FAERS Safety Report 6342715-4 (Version None)
Quarter: 2009Q3

REPORT INFORMATION
  Report Type: 
  Country: None (occurrence: None)
  Receive Date: 20090908
  Receipt Date: 20090831
  Transmission Date: 20100115
  Serious: Yes (Other)
  Sender: FDA-Public Use
  Company Number: US-TEVA-207727USA

PATIENT

DRUGS (2)
  1. LEUCOVORIN CALCIUM TABLET 5MG [Suspect]
  2. FLUOROURACIL [Suspect]

REACTIONS (1)
  - BLINDNESS TRANSIENT [None]
